FAERS Safety Report 15316235 (Version 2)
Quarter: 2018Q3

REPORT INFORMATION
  Report Type: Spontaneous
  Country: DE (occurrence: DE)
  Receive Date: 20180824
  Receipt Date: 20180919
  Transmission Date: 20181010
  Serious: Yes (Hospitalization)
  Sender: FDA-Public Use
  Company Number: DE-JNJFOC-20180818647

PATIENT
  Sex: Female
  Weight: 3.69 kg

DRUGS (1)
  1. STELARA [Suspect]
     Active Substance: USTEKINUMAB
     Indication: CROHN^S DISEASE
     Route: 064
     Dates: start: 20170712, end: 20170712

REACTIONS (2)
  - Foetal exposure during pregnancy [Recovered/Resolved]
  - Respiratory disorder [Unknown]

NARRATIVE: CASE EVENT DATE: 20170817
